FAERS Safety Report 24150801 (Version 1)
Quarter: 2024Q3

REPORT INFORMATION
  Report Type: Spontaneous
  Country: CN (occurrence: CN)
  Receive Date: 20240730
  Receipt Date: 20240730
  Transmission Date: 20241017
  Serious: Yes (Life-Threatening)
  Sender: SANDOZ
  Company Number: CN-002147023-NVSC2024CN153649

PATIENT
  Age: 75 Year
  Sex: Female
  Weight: 64 kg

DRUGS (1)
  1. FLUVASTATIN SODIUM [Suspect]
     Active Substance: FLUVASTATIN SODIUM
     Indication: Lipids abnormal
     Dosage: 80 MG, QD (EXTENDED RELEASE TABLET)
     Route: 048
     Dates: start: 20240617, end: 20240711

REACTIONS (8)
  - Rhabdomyolysis [Recovering/Resolving]
  - Pain [Recovering/Resolving]
  - Pain in extremity [Recovering/Resolving]
  - Blood pressure decreased [Recovering/Resolving]
  - Ecchymosis [Recovering/Resolving]
  - Breath sounds abnormal [Recovering/Resolving]
  - Rales [Recovering/Resolving]
  - Anaemia [Recovering/Resolving]

NARRATIVE: CASE EVENT DATE: 20240711
